FAERS Safety Report 5964315-8 (Version None)
Quarter: 2008Q4

REPORT INFORMATION
  Report Type: 
  Country: None (occurrence: None)
  Receive Date: 20081124
  Receipt Date: 20081119
  Transmission Date: 20090506
  Serious: Yes (Other)
  Sender: FDA-Public Use
  Company Number: BR-PFIZER INC-2008097977

PATIENT
  Sex: Male
  Weight: 60 kg

DRUGS (4)
  1. ALPRAZOLAM [Suspect]
     Indication: DEPRESSION
     Dosage: TEXT:1MG TO 2 MG DAILY
     Route: 048
  2. ALPRAZOLAM [Suspect]
     Indication: SLEEP DISORDER
  3. ENALAPRIL MALEATE [Concomitant]
     Indication: HYPERTENSION
     Route: 065
  4. ATENOLOL [Concomitant]
     Indication: HYPERTENSION
     Route: 065

REACTIONS (4)
  - ARRHYTHMIA [None]
  - DRUG DEPENDENCE [None]
  - DRUG INEFFECTIVE [None]
  - MEMORY IMPAIRMENT [None]
